FAERS Safety Report 9167134 (Version 1)
Quarter: 2013Q1

REPORT INFORMATION
  Report Type: Spontaneous
  Country: US (occurrence: US)
  Receive Date: 20130318
  Receipt Date: 20130318
  Transmission Date: 20140127
  Serious: Yes (Hospitalization)
  Sender: FDA-Public Use
  Company Number: US-BIOGENIDEC-2013BI023287

PATIENT
  Age: 65 Year
  Sex: Female

DRUGS (3)
  1. AVONEX [Suspect]
     Indication: MULTIPLE SCLEROSIS
     Route: 030
     Dates: start: 19980801
  2. AVONEX [Suspect]
     Indication: MULTIPLE SCLEROSIS
     Route: 030
  3. BACLOFEN [Concomitant]

REACTIONS (7)
  - Multiple sclerosis relapse [Recovered/Resolved]
  - Anxiety [Recovered/Resolved]
  - Balance disorder [Unknown]
  - Fall [Recovered/Resolved]
  - Face injury [Recovered/Resolved with Sequelae]
  - Contusion [Not Recovered/Not Resolved]
  - Swelling [Not Recovered/Not Resolved]
